FAERS Safety Report 16918359 (Version 3)
Quarter: 2022Q4

REPORT INFORMATION
  Report Type: Report from Study
  Country: US (occurrence: US)
  Receive Date: 20191015
  Receipt Date: 20221122
  Transmission Date: 20230112
  Serious: No
  Sender: FDA-Public Use
  Company Number: US-SHIRE-US201933260

PATIENT
  Sex: Female

DRUGS (1)
  1. LANADELUMAB [Suspect]
     Active Substance: LANADELUMAB
     Indication: Prophylaxis
     Dosage: 300 MILLIGRAM, Q2WEEKS
     Route: 058

REACTIONS (3)
  - Hereditary angioedema [Recovered/Resolved]
  - Drug ineffective [Unknown]
  - Nasopharyngitis [Unknown]
